FAERS Safety Report 9627106 (Version 2)
Quarter: 2013Q4

REPORT INFORMATION
  Report Type: Spontaneous
  Country: US (occurrence: None)
  Receive Date: 20131011
  Receipt Date: 20131029
  Transmission Date: 20140711
  Serious: Yes (Death, Hospitalization)
  Sender: FDA-Public Use
  Company Number: ACO_38809_2013

PATIENT
  Age: 72 Year
  Sex: Female

DRUGS (4)
  1. AMPYRA [Suspect]
     Indication: PRODUCT USED FOR UNKNOWN INDICATION
     Route: 048
     Dates: end: 20131002
  2. AVONEX (INTERFERON BETA-1A) [Concomitant]
  3. METFORMIN ER (METFORMIN HYDROCHLORIDE) [Concomitant]
  4. LISINOPRIL (LISINOPRIL) [Concomitant]

REACTIONS (2)
  - Cerebrovascular accident [None]
  - Terminal state [None]
